FAERS Safety Report 9038235 (Version 1)
Quarter: 2013Q1

REPORT INFORMATION
  Report Type: Spontaneous
  Country: US (occurrence: US)
  Receive Date: 20130129
  Receipt Date: 20130129
  Transmission Date: 20140127
  Serious: No
  Sender: FDA-Public Use
  Company Number: US-GLAXOSMITHKLINE-A0991602A

PATIENT
  Age: 42 Year
  Sex: Male
  Weight: 90.9 kg

DRUGS (3)
  1. BUPROPION HYDROCHLORIDE [Suspect]
     Indication: PRODUCT USED FOR UNKNOWN INDICATION
     Route: 048
  2. FLUOXETINE [Concomitant]
     Indication: DEPRESSION
     Dosage: 48MG PER DAY
  3. ABILIFY [Concomitant]
     Indication: DEPRESSION

REACTIONS (1)
  - Dental caries [Unknown]
